FAERS Safety Report 18104908 (Version 2)
Quarter: 2020Q3

REPORT INFORMATION
  Report Type: Spontaneous
  Country: AU (occurrence: AU)
  Receive Date: 20200803
  Receipt Date: 20200819
  Transmission Date: 20201103
  Serious: Yes (Other)
  Sender: FDA-Public Use
  Company Number: AU-TASMAN PHARMA, INC.-2020TSM00258

PATIENT
  Age: 22 Year
  Sex: Male

DRUGS (5)
  1. ABILIFY [Concomitant]
     Active Substance: ARIPIPRAZOLE
     Dosage: 400 MG, 1X/MONTH
     Route: 030
  2. PANTOPRAZOLE [Concomitant]
     Active Substance: PANTOPRAZOLE
     Dosage: 40 MG, 2X/DAY
  3. FLUVOXAMINE [Concomitant]
     Active Substance: FLUVOXAMINE
     Dosage: 50 MG
     Dates: start: 2020
  4. CLOZAPINE. [Suspect]
     Active Substance: CLOZAPINE
     Indication: PSYCHOTIC DISORDER
     Dosage: 450 MG
     Dates: start: 2017
  5. CLOZAPINE. [Suspect]
     Active Substance: CLOZAPINE
     Indication: SCHIZOPHRENIA
     Dosage: 450 MG; GRADUALLY UPTITRATED
     Dates: start: 201911

REACTIONS (14)
  - Overdose [Unknown]
  - Vomiting [Unknown]
  - Oesophageal stenosis [Recovered/Resolved]
  - Pulmonary valve incompetence [Unknown]
  - Troponin T increased [Not Recovered/Not Resolved]
  - Left ventricular hypertrophy [Unknown]
  - C-reactive protein decreased [Not Recovered/Not Resolved]
  - Drug level below therapeutic [Recovered/Resolved]
  - Tricuspid valve incompetence [Unknown]
  - Mitral valve incompetence [Unknown]
  - Treatment noncompliance [Unknown]
  - Sinus tachycardia [Recovered/Resolved]
  - Electrocardiogram ST segment elevation [Unknown]
  - Congestive cardiomyopathy [Unknown]

NARRATIVE: CASE EVENT DATE: 201911
